FAERS Safety Report 4845890-3 (Version None)
Quarter: 2005Q4

REPORT INFORMATION
  Report Type: 
  Country: None (occurrence: None)
  Receive Date: 20051129
  Receipt Date: 20050531
  Transmission Date: 20060501
  Serious: Yes (Other)
  Sender: FDA-Public Use
  Company Number: 2005BH000067

PATIENT
  Age: 41 Year
  Sex: Female

DRUGS (1)
  1. OMR-IGG-AM (OMRIX) [Suspect]
     Indication: POLYMYOSITIS
     Dosage: 1000 MG/KG; EVERY DAY; IV
     Route: 042

REACTIONS (5)
  - BRADYCARDIA [None]
  - MUSCULAR WEAKNESS [None]
  - MYOCARDIAL INFARCTION [None]
  - PULMONARY FUNCTION TEST DECREASED [None]
  - SYNCOPE [None]
